FAERS Safety Report 8461204-4 (Version None)
Quarter: 2012Q2

REPORT INFORMATION
  Report Type: 
  Country: None (occurrence: None)
  Receive Date: 20120618
  Receipt Date: 20120618
  Transmission Date: 20120825
  Serious: Yes (Other)
  Sender: FDA-Public Use
  Company Number: None

PATIENT
  Age: 57 Year
  Sex: Male
  Weight: 88.4514 kg

DRUGS (1)
  1. DIPHENHYDRAMINE HCL CAP [Suspect]
     Indication: SEASONAL ALLERGY
     Dosage: 1 TABLET 6 HOURS PO
     Route: 048
     Dates: start: 20120613, end: 20120614

REACTIONS (5)
  - PRURITUS [None]
  - HYPERSENSITIVITY [None]
  - URTICARIA [None]
  - RASH MACULAR [None]
  - ERYTHEMA [None]
